FAERS Safety Report 17740518 (Version 6)
Quarter: 2024Q1

REPORT INFORMATION
  Report Type: Spontaneous
  Country: US (occurrence: US)
  Receive Date: 20200504
  Receipt Date: 20240210
  Transmission Date: 20240409
  Serious: No
  Sender: FDA-Public Use
  Company Number: US-SA-2020SA113743

PATIENT
  Age: 14 Year
  Sex: Male

DRUGS (17)
  1. DUPIXENT [Suspect]
     Active Substance: DUPILUMAB
     Indication: Dermatitis atopic
     Dosage: 400 MG, 1X
     Route: 058
     Dates: start: 20200414, end: 20200414
  2. DUPIXENT [Suspect]
     Active Substance: DUPILUMAB
     Indication: Adrenal disorder
     Dosage: 200 MG, QOW
     Route: 058
     Dates: start: 2020
  3. DUPIXENT [Suspect]
     Active Substance: DUPILUMAB
     Indication: Hypothyroidism
     Dosage: 300 MG, QOW
     Route: 058
  4. DUPIXENT [Suspect]
     Active Substance: DUPILUMAB
     Indication: Tricuspid valve disease
  5. DUPIXENT [Suspect]
     Active Substance: DUPILUMAB
     Indication: Rheumatic disorder
  6. DUPIXENT [Suspect]
     Active Substance: DUPILUMAB
     Indication: Testicular disorder
  7. DUPIXENT [Suspect]
     Active Substance: DUPILUMAB
     Indication: Thyroiditis
  8. DUPIXENT [Suspect]
     Active Substance: DUPILUMAB
     Indication: Vitamin B complex deficiency
  9. MONTELUKAST [Concomitant]
     Active Substance: MONTELUKAST SODIUM
     Route: 065
  10. PROTOPIC [Concomitant]
     Active Substance: TACROLIMUS
     Route: 065
  11. SINGULAIR [Concomitant]
     Active Substance: MONTELUKAST SODIUM
     Route: 065
  12. TRIAMCINOLONE [Concomitant]
     Active Substance: TRIAMCINOLONE
     Route: 065
  13. XYZAL [Concomitant]
     Active Substance: LEVOCETIRIZINE DIHYDROCHLORIDE
     Route: 065
  14. ZYRTEC [Concomitant]
     Active Substance: CETIRIZINE HYDROCHLORIDE
     Route: 065
  15. PARAFFIN [Concomitant]
     Active Substance: PARAFFIN
     Dosage: 0.3MG/0.3 AUTO INJCT
  16. PFIZER-BIONTECH COVID-19 VACCINE [Concomitant]
     Active Substance: TOZINAMERAN
  17. EPIPEN [Concomitant]
     Active Substance: EPINEPHRINE

REACTIONS (7)
  - Visual impairment [Unknown]
  - Condition aggravated [Unknown]
  - Eczema [Not Recovered/Not Resolved]
  - Condition aggravated [Unknown]
  - Vision blurred [Not Recovered/Not Resolved]
  - Dermatitis atopic [Recovering/Resolving]
  - Product use in unapproved indication [Unknown]

NARRATIVE: CASE EVENT DATE: 20200101
